FAERS Safety Report 25076439 (Version 1)
Quarter: 2025Q1

REPORT INFORMATION
  Report Type: Spontaneous
  Country: FR (occurrence: FR)
  Receive Date: 20250313
  Receipt Date: 20250313
  Transmission Date: 20250408
  Serious: Yes (Other)
  Sender: MYLAN
  Company Number: FR-BIOGARAN-B25000270

PATIENT
  Age: 57 Year
  Sex: Female

DRUGS (8)
  1. PREGABALIN [Suspect]
     Active Substance: PREGABALIN
     Indication: Product used for unknown indication
     Dosage: 1 DOSAGE FORM, BID (50 MG,1 CAPSULE MORNING AND EVENING)
     Dates: start: 202404
  2. PREGABALIN [Suspect]
     Active Substance: PREGABALIN
     Dosage: 1 DOSAGE FORM, BID (50 MG,1 CAPSULE MORNING AND EVENING)
     Dates: start: 202404
  3. PREGABALIN [Suspect]
     Active Substance: PREGABALIN
     Dosage: 1 DOSAGE FORM, BID (50 MG,1 CAPSULE MORNING AND EVENING)
     Route: 065
     Dates: start: 202404
  4. PREGABALIN [Suspect]
     Active Substance: PREGABALIN
     Dosage: 1 DOSAGE FORM, BID (50 MG,1 CAPSULE MORNING AND EVENING)
     Route: 065
     Dates: start: 202404
  5. PREGABALIN [Suspect]
     Active Substance: PREGABALIN
     Dosage: 1 DOSAGE FORM, BID (25 MG, 1 CAPSULE MORNING AND EVENING)
  6. PREGABALIN [Suspect]
     Active Substance: PREGABALIN
     Dosage: 1 DOSAGE FORM, BID (25 MG, 1 CAPSULE MORNING AND EVENING)
  7. PREGABALIN [Suspect]
     Active Substance: PREGABALIN
     Dosage: 1 DOSAGE FORM, BID (25 MG, 1 CAPSULE MORNING AND EVENING)
     Route: 065
  8. PREGABALIN [Suspect]
     Active Substance: PREGABALIN
     Dosage: 1 DOSAGE FORM, BID (25 MG, 1 CAPSULE MORNING AND EVENING)
     Route: 065

REACTIONS (7)
  - Abnormal behaviour [Unknown]
  - Crime [Unknown]
  - Impulse-control disorder [Unknown]
  - Aggression [Unknown]
  - Impaired reasoning [Unknown]
  - Weight decreased [Unknown]
  - Vomiting [Unknown]
